FAERS Safety Report 7711043-4 (Version None)
Quarter: 2011Q3

REPORT INFORMATION
  Report Type: 
  Country: None (occurrence: None)
  Receive Date: 20110826
  Receipt Date: 20110816
  Transmission Date: 20111222
  Serious: Yes (Other)
  Sender: FDA-Public Use
  Company Number: US-PAR PHARMACEUTICAL, INC-2011SCPR003186

PATIENT

DRUGS (9)
  1. CLOFARABINE [Suspect]
     Indication: STEM CELL TRANSPLANT
     Dosage: 40 MG/M2, DAILY FOR 4 DAYS
  2. ANTI-THYMOCYTE GLOBULIN RABBIT NOS [Concomitant]
     Indication: STEM CELL TRANSPLANT
     Dosage: UNK, UNKNOWN
     Route: 065
  3. MYCOPHENOLATE MOFETIL [Concomitant]
     Indication: PROPHYLAXIS AGAINST GRAFT VERSUS HOST DISEASE
     Dosage: UNK, UNKNOWN
     Route: 065
  4. METRONIDAZOLE [Interacting]
     Indication: CLOSTRIDIAL INFECTION
     Dosage: 250 MG, TID
     Route: 048
  5. LORAZEPAM [Concomitant]
     Indication: CONVULSION PROPHYLAXIS
     Dosage: UNK, UNKNOWN
     Route: 065
  6. BUSULFAN [Interacting]
     Indication: STEM CELL TRANSPLANT
     Dosage: 0.5 MG/KG, UNK
  7. BUSULFAN [Interacting]
     Dosage: 4.8 MG/KG/DAY
  8. THIOTEPA [Suspect]
     Indication: STEM CELL TRANSPLANT
     Dosage: 5 MG/KG, UNK
  9. TACROLIMUS [Concomitant]
     Indication: PROPHYLAXIS AGAINST GRAFT VERSUS HOST DISEASE
     Dosage: UNK, UNKNOWN
     Route: 065

REACTIONS (3)
  - ACUTE MYELOID LEUKAEMIA RECURRENT [None]
  - ALANINE AMINOTRANSFERASE INCREASED [None]
  - DRUG INTERACTION [None]
